FAERS Safety Report 13735811 (Version 1)
Quarter: 2017Q3

REPORT INFORMATION
  Report Type: Spontaneous
  Country: IT (occurrence: IT)
  Receive Date: 20170710
  Receipt Date: 20170710
  Transmission Date: 20171127
  Serious: Yes (Other)
  Sender: FDA-Public Use
  Company Number: PHHY2009IT24751

PATIENT
  Age: 11 Year
  Sex: Male
  Weight: 40 kg

DRUGS (9)
  1. CHLORPROMAZINE. [Concomitant]
     Active Substance: CHLORPROMAZINE
     Dosage: 6 MG/DAY
  2. RIVASTIGMINE. [Concomitant]
     Active Substance: RIVASTIGMINE
     Dosage: 0.75 MG/DAY
  3. METHYLPREDNISOLONE. [Concomitant]
     Active Substance: METHYLPREDNISOLONE
     Dosage: 4 MG/DAY
     Route: 051
  4. OLANZAPINE. [Concomitant]
     Active Substance: OLANZAPINE
     Dosage: UNK
  5. ALUMINIUM W/MAGNESIUM [Concomitant]
  6. ACETYLCARNITINE [Concomitant]
     Active Substance: ACETYLCARNITINE
     Dosage: 1000 MG/DAY
  7. METHYSERGIDE MALEATE [Suspect]
     Active Substance: METHYSERGIDE MALEATE
     Dosage: UNK
  8. RANITIDINE. [Concomitant]
     Active Substance: RANITIDINE
     Dosage: 150 MG/DAY
  9. TRIMIPRAMINE [Concomitant]
     Active Substance: TRIMIPRAMINE
     Dosage: 6 MG/DAY

REACTIONS (2)
  - Anxiety [None]
  - Psychomotor hyperactivity [Unknown]
